FAERS Safety Report 5706849-7 (Version None)
Quarter: 2008Q2

REPORT INFORMATION
  Report Type: 
  Country: None (occurrence: None)
  Receive Date: 20080416
  Receipt Date: 20080408
  Transmission Date: 20081010
  Serious: Yes (Hospitalization, Other)
  Sender: FDA-Public Use
  Company Number: US-BAYER-200812110NA

PATIENT
  Age: 63 Year
  Sex: Male

DRUGS (18)
  1. BETASERON [Suspect]
     Indication: PROGRESSIVE RELAPSING MULTIPLE SCLEROSIS
     Dosage: TOTAL DAILY DOSE: 8 MIU
     Route: 058
     Dates: start: 20071017, end: 20071224
  2. BETASERON [Suspect]
     Route: 058
     Dates: start: 19940704, end: 19990301
  3. BETASERON [Suspect]
     Route: 058
     Dates: start: 20080101, end: 20080109
  4. BETASERON [Suspect]
     Route: 058
     Dates: start: 20080313
  5. BETASERON [Suspect]
     Route: 058
     Dates: start: 20080112, end: 20080308
  6. LISINOPRIL [Concomitant]
     Dates: start: 20071224
  7. METOPROLOL [Concomitant]
     Dates: start: 20071224
  8. COUMADIN [Concomitant]
     Dates: start: 20071224
  9. LASIX [Concomitant]
     Dates: start: 20071224
  10. ASPIRIN [Concomitant]
     Dosage: UNIT DOSE: 81 MG
     Route: 048
     Dates: start: 20071224
  11. OXYBUTYNIN CHLORIDE [Concomitant]
     Dates: start: 19920101
  12. BACLOFEN [Concomitant]
     Dates: start: 19920101
  13. PRAVASTATIN [Concomitant]
     Indication: BLOOD CHOLESTEROL INCREASED
     Dates: start: 19920101
  14. AMANTADINE HCL [Concomitant]
     Indication: INFLUENZA IMMUNISATION
     Dates: start: 19920101
  15. PAXIL ( GENERIC) [Concomitant]
     Dates: start: 19920101
  16. OMEPRAZOLE [Concomitant]
     Indication: HIATUS HERNIA
  17. MULTI-VITAMIN [Concomitant]
     Dates: start: 19920101
  18. DOCUSATE [Concomitant]
     Dates: start: 19920101

REACTIONS (11)
  - ASTHENIA [None]
  - BLOOD POTASSIUM DECREASED [None]
  - CARDIAC DISORDER [None]
  - CARDIAC FAILURE CONGESTIVE [None]
  - CELLULITIS [None]
  - CYSTITIS [None]
  - DYSPNOEA [None]
  - ERYTHEMA [None]
  - INFLAMMATION [None]
  - MYOCARDIAL INFARCTION [None]
  - PYREXIA [None]
